FAERS Safety Report 6445192-8 (Version None)
Quarter: 2009Q4

REPORT INFORMATION
  Report Type: 
  Country: None (occurrence: None)
  Receive Date: 20091118
  Receipt Date: 20090122
  Transmission Date: 20100525
  Serious: No
  Sender: FDA-Public Use
  Company Number: US-BRISTOL-MYERS SQUIBB COMPANY-14492813

PATIENT
  Sex: Male

DRUGS (2)
  1. METFORMIN HCL [Suspect]
  2. GLUCOPHAGE XR [Suspect]

REACTIONS (1)
  - MEDICATION RESIDUE [None]
